FAERS Safety Report 11713530 (Version 2)
Quarter: 2015Q4

REPORT INFORMATION
  Report Type: Spontaneous
  Country: US (occurrence: US)
  Receive Date: 20151109
  Receipt Date: 20151208
  Transmission Date: 20160304
  Serious: No
  Sender: FDA-Public Use
  Company Number: US-BRISTOL-MYERS SQUIBB COMPANY-BMS-2015-076924

PATIENT
  Sex: Female

DRUGS (1)
  1. SPRYCEL [Suspect]
     Active Substance: DASATINIB
     Indication: PRODUCT USED FOR UNKNOWN INDICATION
     Dosage: 50 MG, UNK
     Route: 048
     Dates: start: 20140830

REACTIONS (8)
  - Constipation [Unknown]
  - Reading disorder [Unknown]
  - Dry eye [Unknown]
  - Chills [Unknown]
  - Musculoskeletal stiffness [Unknown]
  - Headache [Unknown]
  - Vision blurred [Unknown]
  - Cognitive disorder [Unknown]
